FAERS Safety Report 9994241 (Version 3)
Quarter: 2014Q2

REPORT INFORMATION
  Report Type: Spontaneous
  Country: US (occurrence: US)
  Receive Date: 20140310
  Receipt Date: 20140404
  Transmission Date: 20141212
  Serious: Yes (Other)
  Sender: FDA-Public Use
  Company Number: US-BAXTER-2014BAX010465

PATIENT
  Sex: Female

DRUGS (2)
  1. TISSEEL VH S/D [Suspect]
     Indication: PTERYGIUM OPERATION
     Dates: start: 20140220, end: 20140220
  2. TISSEEL VH S/D [Suspect]
     Indication: OFF LABEL USE

REACTIONS (1)
  - Drug ineffective [Recovered/Resolved]
